FAERS Safety Report 9235863 (Version 2)
Quarter: 2013Q2

REPORT INFORMATION
  Report Type: Report from Study
  Country: US (occurrence: US)
  Receive Date: 20130417
  Receipt Date: 20130430
  Transmission Date: 20140414
  Serious: Yes (Death)
  Sender: FDA-Public Use
  Company Number: US-ASTELLAS-2013US003983

PATIENT
  Sex: Female

DRUGS (6)
  1. ERLOTINIB TABLET [Suspect]
     Indication: PANCREATIC CARCINOMA METASTATIC
     Dosage: 100 MG, UID/QD
     Route: 048
     Dates: start: 20130214
  2. GEMZAR [Suspect]
     Indication: PANCREATIC CARCINOMA METASTATIC
     Dosage: 1000 M2 3 WEEKS ON AND 1 WEEK OFF
     Route: 042
     Dates: start: 20130214
  3. MS CONTIN [Concomitant]
     Indication: PAIN
     Dosage: 60 DF, QOD
     Route: 048
  4. OMEPRAZOLE [Concomitant]
     Indication: PRODUCT USED FOR UNKNOWN INDICATION
     Dosage: 10 DF, UNKNOWN/D
     Route: 048
  5. MEFACIT [Concomitant]
     Indication: NAUSEA
     Dosage: 5 UG, Q3D
     Route: 048
  6. PERCOCET                           /00867901/ [Concomitant]
     Indication: PAIN
     Dosage: 10/325
     Route: 048

REACTIONS (1)
  - Malignant neoplasm progression [Fatal]
